FAERS Safety Report 11529516 (Version 1)
Quarter: 2015Q3

REPORT INFORMATION
  Report Type: Spontaneous
  Country: US (occurrence: None)
  Receive Date: 20150918
  Receipt Date: 20150918
  Transmission Date: 20151125
  Serious: Yes (Other)
  Sender: FDA-Public Use
  Company Number: None

PATIENT
  Age: 60 Year
  Sex: Female
  Weight: 82.1 kg

DRUGS (6)
  1. METFORMIN [Concomitant]
     Active Substance: METFORMIN HYDROCHLORIDE
  2. ASPRIN [Concomitant]
     Active Substance: ASPIRIN
  3. LOSARTAN. [Concomitant]
     Active Substance: LOSARTAN
  4. CRESTOR [Concomitant]
     Active Substance: ROSUVASTATIN CALCIUM
  5. CONTRAVE [Suspect]
     Active Substance: BUPROPION HYDROCHLORIDE\NALTREXONE HYDROCHLORIDE
     Indication: OBESITY
     Dosage: ONE PILL  ONCE DAILY  BY MOUTH
     Route: 048
     Dates: start: 20150905, end: 20150905
  6. CONTRAVE [Suspect]
     Active Substance: BUPROPION HYDROCHLORIDE\NALTREXONE HYDROCHLORIDE
     Indication: FOOD CRAVING
     Dosage: ONE PILL  ONCE DAILY  BY MOUTH
     Route: 048
     Dates: start: 20150905, end: 20150905

REACTIONS (5)
  - Asthenia [None]
  - Nausea [None]
  - Malaise [None]
  - Drug ineffective [None]
  - Dizziness [None]

NARRATIVE: CASE EVENT DATE: 20150905
